FAERS Safety Report 12452171 (Version 1)
Quarter: 2016Q2

REPORT INFORMATION
  Report Type: Spontaneous
  Country: JP (occurrence: JP)
  Receive Date: 20160609
  Receipt Date: 20160609
  Transmission Date: 20160815
  Serious: Yes (Life-Threatening)
  Sender: FDA-Public Use
  Company Number: PHJP1998JP003963

PATIENT
  Age: 50 Year
  Sex: Male
  Weight: 67 kg

DRUGS (8)
  1. BONALFA [Concomitant]
     Indication: PSORIASIS
     Route: 061
  2. PONSTEL [Concomitant]
     Active Substance: MEFENAMIC ACID
     Indication: PRODUCT USED FOR UNKNOWN INDICATION
     Dosage: 750 MG, QD
     Route: 048
     Dates: start: 19980924, end: 19980927
  3. MARZULENE S [Concomitant]
     Active Substance: GLUTAMINE\SODIUM GUALENATE
     Indication: GASTRITIS
     Route: 048
     Dates: start: 19980924, end: 19980927
  4. SANDIMMUN SIM+CAP [Suspect]
     Active Substance: CYCLOSPORINE
     Indication: PSORIASIS
     Dosage: 250 MG, QD
     Route: 048
     Dates: start: 19921120, end: 19980917
  5. PANDEL [Concomitant]
     Active Substance: HYDROCORTISONE PROBUTATE
     Indication: PSORIASIS
     Route: 061
  6. CRAVIT [Concomitant]
     Active Substance: LEVOFLOXACIN
     Indication: PRODUCT USED FOR UNKNOWN INDICATION
     Dosage: 300 MG, QD
     Route: 048
     Dates: start: 19980924, end: 19981029
  7. PL [Concomitant]
     Active Substance: ACETAMINOPHEN\CAFFEINE\PROMETHAZINE\SALICYLAMIDE
     Indication: PRODUCT USED FOR UNKNOWN INDICATION
     Dosage: 3 G, QD
     Route: 048
     Dates: start: 19980924, end: 19980927
  8. ANTEBATE [Concomitant]
     Active Substance: BETAMETHASONE DIPROPIONATE
     Indication: PSORIASIS
     Route: 061

REACTIONS (1)
  - Liver abscess [Recovering/Resolving]

NARRATIVE: CASE EVENT DATE: 19980917
